FAERS Safety Report 17975758 (Version 2)
Quarter: 2020Q3

REPORT INFORMATION
  Report Type: Spontaneous
  Country: US (occurrence: US)
  Receive Date: 20200702
  Receipt Date: 20200819
  Transmission Date: 20201103
  Serious: No
  Sender: FDA-Public Use
  Company Number: US-EMD SERONO-9172300

PATIENT
  Sex: Female

DRUGS (3)
  1. MAVENCLAD [Suspect]
     Active Substance: CLADRIBINE
     Indication: MULTIPLE SCLEROSIS
     Dosage: COURSE ONE THERAPY.
  2. MAVENCLAD [Suspect]
     Active Substance: CLADRIBINE
     Dosage: COURSE TWO CYCLE ONE THERAPY.
  3. MAVENCLAD [Suspect]
     Active Substance: CLADRIBINE
     Dosage: COURSE TWO CYCLE TWO THERAPY.
     Dates: end: 20200803

REACTIONS (1)
  - Gastrooesophageal reflux disease [Unknown]
